FAERS Safety Report 5207207-4 (Version None)
Quarter: 2007Q1

REPORT INFORMATION
  Report Type: 
  Country: None (occurrence: None)
  Receive Date: 20070112
  Receipt Date: 20070105
  Transmission Date: 20070707
  Serious: Yes (Hospitalization)
  Sender: FDA-Public Use
  Company Number: DE-GLAXOSMITHKLINE-B0453269A

PATIENT
  Age: 59 Year
  Sex: Female
  Weight: 64 kg

DRUGS (5)
  1. TOPOTECAN [Suspect]
     Indication: OVARIAN CANCER
     Dosage: 6.92MG WEEKLY
     Route: 042
     Dates: start: 20061220
  2. NOVALGIN [Concomitant]
     Indication: PAIN
     Dosage: 1G TWO TIMES PER WEEK
     Route: 042
     Dates: start: 20061223, end: 20061231
  3. METOCLOPRAMIDE [Concomitant]
     Indication: NAUSEA
     Route: 042
     Dates: start: 20061223, end: 20061231
  4. OMEPRAZOLE [Concomitant]
     Indication: PROPHYLAXIS
     Dosage: 10MG PER DAY
     Dates: start: 20061223, end: 20061231
  5. FORTECORTIN [Concomitant]
     Indication: NAUSEA
     Route: 042
     Dates: start: 20061223, end: 20061231

REACTIONS (1)
  - CONDITION AGGRAVATED [None]
